FAERS Safety Report 16044720 (Version 2)
Quarter: 2019Q2

REPORT INFORMATION
  Report Type: Spontaneous
  Country: US (occurrence: US)
  Receive Date: 20190306
  Receipt Date: 20190509
  Transmission Date: 20190711
  Serious: Yes (Other)
  Sender: FDA-Public Use
  Company Number: US-ELI_LILLY_AND_COMPANY-US201902014064

PATIENT
  Sex: Female

DRUGS (1)
  1. ZYPREXA [Suspect]
     Active Substance: OLANZAPINE
     Indication: PRODUCT USED FOR UNKNOWN INDICATION
     Dosage: UNK, OTHER, EVERY 4 WEEKS
     Route: 065

REACTIONS (6)
  - Back pain [Unknown]
  - Loss of consciousness [Unknown]
  - Weight increased [Unknown]
  - Asthenia [Unknown]
  - Cerebral disorder [Unknown]
  - Pollakiuria [Unknown]
